FAERS Safety Report 6313183-3 (Version None)
Quarter: 2009Q3

REPORT INFORMATION
  Report Type: 
  Country: None (occurrence: None)
  Receive Date: 20090814
  Receipt Date: 20090803
  Transmission Date: 20100115
  Serious: Yes (Other)
  Sender: FDA-Public Use
  Company Number: 2009AL005155

PATIENT
  Sex: Female

DRUGS (2)
  1. CITALOPRAM HYDROBROMIDE [Suspect]
     Indication: ANXIETY
     Dosage: 15 MG; PO
     Route: 048
     Dates: start: 20090601, end: 20090709
  2. ERYTHROMYCIN [Concomitant]

REACTIONS (1)
  - SEROTONIN SYNDROME [None]
